FAERS Safety Report 5416898-4 (Version None)
Quarter: 2007Q3

REPORT INFORMATION
  Report Type: 
  Country: None (occurrence: None)
  Receive Date: 20070816
  Receipt Date: 20070807
  Transmission Date: 20080115
  Serious: Yes (Other)
  Sender: FDA-Public Use
  Company Number: FR-PFIZER INC-2007065634

PATIENT
  Age: 56 Year
  Sex: Male

DRUGS (1)
  1. TAHOR [Suspect]

REACTIONS (2)
  - EYELID PAIN [None]
  - LIP SWELLING [None]
